FAERS Safety Report 10246141 (Version 1)
Quarter: 2014Q2

REPORT INFORMATION
  Report Type: Spontaneous
  Country: TR (occurrence: TR)
  Receive Date: 20140619
  Receipt Date: 20140619
  Transmission Date: 20141212
  Serious: Yes (Other)
  Sender: FDA-Public Use
  Company Number: TR-JNJFOC-20140606807

PATIENT
  Age: 11 Year
  Sex: Female

DRUGS (3)
  1. RISPERIDONE [Suspect]
     Indication: TOURETTE^S DISORDER
     Route: 065
  2. RISPERIDONE [Suspect]
     Indication: TOURETTE^S DISORDER
     Route: 065
  3. RISPERIDONE [Suspect]
     Indication: TOURETTE^S DISORDER
     Route: 065

REACTIONS (2)
  - Tic [Unknown]
  - Off label use [Unknown]
